FAERS Safety Report 4907855-2 (Version None)
Quarter: 2006Q1

REPORT INFORMATION
  Report Type: 
  Country: None (occurrence: None)
  Receive Date: 20060210
  Receipt Date: 20060203
  Transmission Date: 20060701
  Serious: Yes (Other)
  Sender: FDA-Public Use
  Company Number: GB-AVENTIS-200611142GDDC

PATIENT

DRUGS (1)
  1. TELFAST [Suspect]

REACTIONS (1)
  - CONVULSION [None]
